FAERS Safety Report 16702482 (Version 4)
Quarter: 2019Q4

REPORT INFORMATION
  Report Type: Spontaneous
  Country: US (occurrence: US)
  Receive Date: 20190814
  Receipt Date: 20191014
  Transmission Date: 20200122
  Serious: No
  Sender: FDA-Public Use
  Company Number: US-BAYER-2019-139659

PATIENT
  Age: 55 Year
  Sex: Male

DRUGS (1)
  1. KOGENATE FS [Suspect]
     Active Substance: ANTIHEMOPHILIC FACTOR, HUMAN RECOMBINANT
     Indication: HAEMOPHILIA
     Dosage: 2000 IU
     Route: 042

REACTIONS (3)
  - Recalled product administered [None]
  - Drug ineffective [None]
  - Recalled product [None]

NARRATIVE: CASE EVENT DATE: 2019
